FAERS Safety Report 20370097 (Version 10)
Quarter: 2023Q2

REPORT INFORMATION
  Report Type: Spontaneous
  Country: US (occurrence: US)
  Receive Date: 20220124
  Receipt Date: 20230410
  Transmission Date: 20230721
  Serious: No
  Sender: FDA-Public Use
  Company Number: US-BIOGEN-2022BI01089114

PATIENT
  Age: 62 Year
  Sex: Female

DRUGS (18)
  1. VUMERITY [Suspect]
     Active Substance: DIROXIMEL FUMARATE
     Indication: Multiple sclerosis
     Route: 050
     Dates: start: 20220104
  2. VUMERITY [Suspect]
     Active Substance: DIROXIMEL FUMARATE
     Dosage: TAKE ONE CAPSULE (231MG) BY MOUTH TWICE DAILY FOR THE FIRST 7 DAYS, THEREAFTER TOOK TWO ?CAPSULES...
     Route: 050
     Dates: start: 20220120
  3. VUMERITY [Suspect]
     Active Substance: DIROXIMEL FUMARATE
     Route: 050
     Dates: start: 20220120
  4. VUMERITY [Suspect]
     Active Substance: DIROXIMEL FUMARATE
     Dosage: 2 CAPSULES ONCE DAILY
     Route: 050
  5. ASPIRIN [Suspect]
     Active Substance: ASPIRIN
     Indication: Flushing
     Route: 050
  6. FAMOTIDINE [Concomitant]
     Active Substance: FAMOTIDINE
     Route: 050
  7. BYSTOLIC [Concomitant]
     Active Substance: NEBIVOLOL HYDROCHLORIDE
     Route: 050
  8. HYDROCHLOROTHIAZIDE [Concomitant]
     Active Substance: HYDROCHLOROTHIAZIDE
     Route: 050
  9. SOOLANTRA [Concomitant]
     Active Substance: IVERMECTIN
     Route: 050
  10. SODIUM THIOSULFATE [Concomitant]
     Active Substance: SODIUM THIOSULFATE
     Route: 050
  11. VITAMIN D3 [Concomitant]
     Active Substance: CHOLECALCIFEROL
     Route: 050
  12. CALCIUM [Concomitant]
     Active Substance: CALCIUM
     Route: 050
  13. MAGNESIUM [Concomitant]
     Active Substance: MAGNESIUM
     Route: 050
  14. ZINC [Concomitant]
     Active Substance: ZINC
     Route: 050
  15. ASPIRIN 81 LOW DOSE [Concomitant]
     Route: 050
  16. CROMOLYN SODIUM [Concomitant]
     Active Substance: CROMOLYN SODIUM
     Route: 050
  17. CLONAZEPAM [Concomitant]
     Active Substance: CLONAZEPAM
     Route: 050
  18. ELIQUIS [Concomitant]
     Active Substance: APIXABAN
     Route: 050

REACTIONS (7)
  - Muscle spasms [Unknown]
  - Rosacea [Unknown]
  - Flushing [Not Recovered/Not Resolved]
  - Dyspepsia [Not Recovered/Not Resolved]
  - Pruritus [Not Recovered/Not Resolved]
  - Abdominal pain upper [Unknown]
  - Nausea [Recovered/Resolved]

NARRATIVE: CASE EVENT DATE: 20220101
